FAERS Safety Report 13321740 (Version 1)
Quarter: 2017Q1

REPORT INFORMATION
  Report Type: Spontaneous
  Country: US (occurrence: US)
  Receive Date: 20170309
  Receipt Date: 20170309
  Transmission Date: 20170428
  Serious: Yes (Other)
  Sender: FDA-Public Use
  Company Number: US-PFIZER INC-2017095052

PATIENT
  Sex: Male

DRUGS (2)
  1. VIAGRA [Suspect]
     Active Substance: SILDENAFIL CITRATE
     Dosage: 50 MG, UNK
  2. VIAGRA [Suspect]
     Active Substance: SILDENAFIL CITRATE
     Dosage: 100 MG, UNK

REACTIONS (7)
  - Spinal fracture [Unknown]
  - Stress [Unknown]
  - Drug ineffective [Unknown]
  - Anxiety [Unknown]
  - Cervical vertebral fracture [Unknown]
  - Joint injury [Unknown]
  - Intentional product misuse [Unknown]
